FAERS Safety Report 9574917 (Version 2)
Quarter: 2013Q4

REPORT INFORMATION
  Report Type: Report from Study
  Country: BE (occurrence: BE)
  Receive Date: 20131001
  Receipt Date: 20131015
  Transmission Date: 20140711
  Serious: Yes (Other)
  Sender: FDA-Public Use
  Company Number: BE-AMGEN-BELNI2013068065

PATIENT
  Age: 64 Year
  Sex: Male

DRUGS (12)
  1. XGEVA [Suspect]
     Indication: METASTASES TO BONE
     Dosage: 120 MG, Q4WK
     Route: 058
     Dates: start: 20120711, end: 20130828
  2. DENOSUMAB [Suspect]
     Indication: PRODUCT USED FOR UNKNOWN INDICATION
     Dosage: UNK
     Route: 065
  3. DUROGESIC [Concomitant]
     Dosage: 50 MUG, UNK
     Route: 062
     Dates: start: 201102
  4. HYDROCORTISONE [Concomitant]
     Dosage: 30 MG, QD
     Dates: start: 20110803
  5. VASEXTEN [Concomitant]
     Dosage: 20 MG, QD
     Dates: start: 2008
  6. PANTOMED                           /00178901/ [Concomitant]
     Dosage: 40 MG, QD
     Dates: start: 200808
  7. MICARDIS [Concomitant]
     Dosage: 80 MG, QD
     Dates: start: 20110413
  8. CALCIUM [Concomitant]
     Dosage: 500 MG, QD
     Dates: start: 2008
  9. VITAMIN D                          /00107901/ [Concomitant]
     Dosage: 400 IU, QD
     Dates: start: 2008
  10. ZOLADEX                            /00732101/ [Concomitant]
     Dosage: 10.8 MG, Q3MO
     Dates: start: 20061212
  11. INSULIN [Concomitant]
     Dosage: 12 UNIT, TID
     Dates: start: 2012
  12. LANTUS [Concomitant]
     Dosage: 35 UNIT, QD
     Dates: start: 2012

REACTIONS (1)
  - Osteonecrosis of jaw [Not Recovered/Not Resolved]
